FAERS Safety Report 8439712-1 (Version None)
Quarter: 2012Q2

REPORT INFORMATION
  Report Type: 
  Country: None (occurrence: None)
  Receive Date: 20120323
  Receipt Date: 20110527
  Transmission Date: 20120825
  Serious: Yes (Hospitalization)
  Sender: FDA-Public Use
  Company Number: 163-21880-11053840

PATIENT
  Age: 71 Year
  Sex: Male

DRUGS (1)
  1. REVLIMID [Suspect]
     Indication: MULTIPLE MYELOMA
     Dosage: 25 MG, OD FOR 21 DAYS EVERY 28 DAYS, PO
     Route: 048
     Dates: start: 20110301

REACTIONS (5)
  - DYSGEUSIA [None]
  - WEIGHT DECREASED [None]
  - DEHYDRATION [None]
  - DIARRHOEA [None]
  - DECREASED APPETITE [None]
